FAERS Safety Report 5396212-3 (Version None)
Quarter: 2007Q3

REPORT INFORMATION
  Report Type: 
  Country: None (occurrence: None)
  Receive Date: 20070725
  Receipt Date: 20070723
  Transmission Date: 20080115
  Serious: Yes (Other)
  Sender: FDA-Public Use
  Company Number: PHEH2007US07266

PATIENT
  Age: 49 Year

DRUGS (2)
  1. DIOVAN [Suspect]
     Indication: HYPERTENSION
     Dosage: 160 MG, QD
     Dates: start: 20070301
  2. DIOVAN [Suspect]
     Dosage: 320 MG, QD

REACTIONS (4)
  - BLOOD PRESSURE INADEQUATELY CONTROLLED [None]
  - FLUID RETENTION [None]
  - MUSCLE SPASMS [None]
  - NEUROPATHY [None]
